FAERS Safety Report 16607098 (Version 1)
Quarter: 2019Q3

REPORT INFORMATION
  Report Type: Spontaneous
  Country: BR (occurrence: BR)
  Receive Date: 20190722
  Receipt Date: 20190722
  Transmission Date: 20191004
  Serious: No
  Sender: FDA-Public Use
  Company Number: BR-ALKEM LABORATORIES LIMITED-BR-ALKEM-2019-05890

PATIENT
  Age: 43 Year
  Sex: Female

DRUGS (5)
  1. TRIAMCINOLONE ACETONIDE. [Suspect]
     Active Substance: TRIAMCINOLONE ACETONIDE
     Indication: LICHEN PLANOPILARIS
     Dosage: 10 MG/ML, BID
     Route: 026
  2. HYDROXYCHLOROQUINE [Concomitant]
     Active Substance: HYDROXYCHLOROQUINE
     Indication: LICHEN PLANOPILARIS
     Dosage: 400 MILLIGRAM, QD
     Route: 065
  3. FINASTERIDE. [Concomitant]
     Active Substance: FINASTERIDE
     Indication: LICHEN PLANOPILARIS
     Dosage: 5 MILLIGRAM, QD
     Route: 065
  4. MINOXIDIL. [Concomitant]
     Active Substance: MINOXIDIL
     Indication: LICHEN PLANOPILARIS
     Dosage: 5%, QD
     Route: 061
  5. TACROLIMUS. [Concomitant]
     Active Substance: TACROLIMUS
     Indication: LICHEN PLANOPILARIS
     Dosage: 0.1%, QD
     Route: 061

REACTIONS (1)
  - Skin atrophy [Unknown]
